FAERS Safety Report 8844961 (Version 1)
Quarter: 2012Q4

REPORT INFORMATION
  Report Type: Spontaneous
  Country: US (occurrence: None)
  Receive Date: 20121015
  Receipt Date: 20121015
  Transmission Date: 20130627
  Serious: No
  Sender: FDA-Public Use
  Company Number: DKLU1072352

PATIENT
  Age: 17 Year
  Sex: Female

DRUGS (1)
  1. PANHEMATIN [Suspect]
     Indication: PORPHYRIA
     Dosage: 301 mg milligrams(s), Every 24 hours, Intravenous
(not otherwise specified)
     Route: 042
     Dates: start: 20110803, end: 20110804

REACTIONS (2)
  - Injection site pain [None]
  - Phlebitis [None]
